FAERS Safety Report 8824558 (Version 1)
Quarter: 2012Q4

REPORT INFORMATION
  Report Type: 
  Country: DE (occurrence: DE)
  Receive Date: 20121004
  Receipt Date: 20121004
  Transmission Date: 20130627
  Serious: Yes (Other)
  Sender: FDA-Public Use
  Company Number: DE-JNJFOC-20121001816

PATIENT
  Sex: Female

DRUGS (1)
  1. XARELTO [Suspect]
     Indication: PRODUCT USED FOR UNKNOWN INDICATION
     Route: 048

REACTIONS (5)
  - Haemorrhage [Unknown]
  - Haematoma [Unknown]
  - Coagulation factor VIII level decreased [Unknown]
  - Coagulation factor VII level decreased [Unknown]
  - Coagulation test abnormal [Unknown]
